FAERS Safety Report 22262943 (Version 1)
Quarter: 2023Q2

REPORT INFORMATION
  Report Type: Spontaneous
  Country: US (occurrence: US)
  Receive Date: 20230428
  Receipt Date: 20230428
  Transmission Date: 20230721
  Serious: No
  Sender: FDA-Public Use
  Company Number: US-GLENMARK PHARMACEUTICALS-2023GMK081029

PATIENT

DRUGS (1)
  1. RYALTRIS [Suspect]
     Active Substance: MOMETASONE FUROATE MONOHYDRATE\OLOPATADINE HYDROCHLORIDE
     Indication: Product used for unknown indication
     Dosage: BID (INSTILL 1 SPRAY INTO EACH NOSTRIL TWICE DAILY)
     Route: 045

REACTIONS (3)
  - Disease recurrence [Unknown]
  - Hypersensitivity [Unknown]
  - Drug effect less than expected [Unknown]
